FAERS Safety Report 5644802-2 (Version None)
Quarter: 2008Q1

REPORT INFORMATION
  Report Type: 
  Country: None (occurrence: None)
  Receive Date: 20080229
  Receipt Date: 20080121
  Transmission Date: 20080703
  Serious: No
  Sender: FDA-Public Use
  Company Number: A0669773A

PATIENT
  Age: 77 Year
  Sex: Female

DRUGS (5)
  1. VALTREX [Suspect]
     Dosage: 1000MG THREE TIMES PER DAY
     Route: 048
     Dates: start: 20070801, end: 20070802
  2. CENTRUM SILVER [Concomitant]
  3. OS-CAL + D [Concomitant]
  4. GARLIC OIL [Concomitant]
  5. FLAX SEED OIL [Concomitant]

REACTIONS (10)
  - ASTHENIA [None]
  - DIARRHOEA [None]
  - DIZZINESS [None]
  - FATIGUE [None]
  - FEELING ABNORMAL [None]
  - HEADACHE [None]
  - IMMOBILE [None]
  - MALAISE [None]
  - NAUSEA [None]
  - SOMATOFORM DISORDER GASTROINTESTINAL [None]
